FAERS Safety Report 8986585 (Version 1)
Quarter: 2012Q4

REPORT INFORMATION
  Report Type: 
  Country: JP (occurrence: JP)
  Receive Date: 20121226
  Receipt Date: 20121226
  Transmission Date: 20130627
  Serious: Yes (Other)
  Sender: FDA-Public Use
  Company Number: JP-MYLANLABS-2012S1025889

PATIENT
  Age: 72 Year
  Sex: Male

DRUGS (5)
  1. CYCLOPHOSPHAMIDE [Suspect]
     Indication: DIFFUSE LARGE B-CELL LYMPHOMA
     Dosage: 7 courses (1400mg)
     Route: 065
     Dates: start: 1996, end: 1998
  2. DOXORUBICIN [Suspect]
     Indication: DIFFUSE LARGE B-CELL LYMPHOMA
     Dosage: 7 courses (90mg)
     Route: 065
     Dates: start: 1996, end: 1998
  3. VINCRISTINE [Suspect]
     Indication: DIFFUSE LARGE B-CELL LYMPHOMA
     Dosage: 7 courses (2mg)
     Route: 065
     Dates: start: 1996, end: 1998
  4. PREDNISOLONE [Suspect]
     Indication: DIFFUSE LARGE B-CELL LYMPHOMA
     Dosage: 7 courses (110mg)
     Route: 065
     Dates: start: 1996, end: 1998
  5. ETOPOSIDE [Suspect]
     Indication: DIFFUSE LARGE B-CELL LYMPHOMA
     Dosage: 12 courses of 75 mg/day for 2w once a month
     Route: 048
     Dates: start: 1996, end: 1998

REACTIONS (1)
  - Sweat gland tumour [Recovered/Resolved]
